FAERS Safety Report 15479456 (Version 2)
Quarter: 2018Q4

REPORT INFORMATION
  Report Type: Spontaneous
  Country: US (occurrence: US)
  Receive Date: 20181009
  Receipt Date: 20181015
  Transmission Date: 20190205
  Serious: Yes (Other)
  Sender: FDA-Public Use
  Company Number: US-PFIZER INC-2018399189

PATIENT
  Age: 76 Year
  Sex: Female
  Weight: 58.97 kg

DRUGS (11)
  1. REQUIP [Concomitant]
     Active Substance: ROPINIROLE HYDROCHLORIDE
     Indication: RESTLESS LEGS SYNDROME
     Dosage: UNK, AS NEEDED (1-2 TABLETS)
  2. LYRICA [Suspect]
     Active Substance: PREGABALIN
     Dosage: 50 MG, 2X/DAY
     Route: 048
  3. LYRICA [Suspect]
     Active Substance: PREGABALIN
     Dosage: UNK, 1X/DAY
     Dates: start: 20180919
  4. CYCLOBENZAPRINE. [Concomitant]
     Active Substance: CYCLOBENZAPRINE
     Indication: ROAD TRAFFIC ACCIDENT
     Dosage: 5 MG, 1X/DAY
     Dates: end: 20180918
  5. LYRICA [Suspect]
     Active Substance: PREGABALIN
     Indication: FIBROMYALGIA
     Dosage: 75 MG, 2X/DAY
     Route: 048
  6. DIAZEPAM. [Concomitant]
     Active Substance: DIAZEPAM
     Indication: NEURALGIA
     Dosage: 5 MG, 1X/DAY
  7. DIAZEPAM. [Concomitant]
     Active Substance: DIAZEPAM
     Dosage: 2 MG, 1X/DAY
  8. HYDROCODONE/ACETAMINOPHEN [Concomitant]
     Active Substance: ACETAMINOPHEN\HYDROCODONE
     Indication: PAIN
     Dosage: UNK, AS NEEDED [HYDROCODONE BITARTRATE: 7.5, PARACETAMOL: 325 TABLET THREE TIMES A DAY]
  9. AMBIEN CR [Concomitant]
     Active Substance: ZOLPIDEM TARTRATE
     Indication: INSOMNIA
     Dosage: 12.5 MG, UNK
  10. MOBIC [Concomitant]
     Active Substance: MELOXICAM
     Indication: PAIN
     Dosage: 7.5 MG, 1X/DAY
  11. CELEBREX [Concomitant]
     Active Substance: CELECOXIB
     Indication: ROAD TRAFFIC ACCIDENT
     Dosage: 100 MG, 2X/DAY
     Dates: end: 20180918

REACTIONS (3)
  - Neck pain [Unknown]
  - Intentional product use issue [Unknown]
  - Mental impairment [Unknown]

NARRATIVE: CASE EVENT DATE: 20180919
